FAERS Safety Report 8421800 (Version 4)
Quarter: 2012Q4

REPORT INFORMATION
  Report Type: Report from Study
  Country: CA (occurrence: CA)
  Receive Date: 20120223
  Receipt Date: 20121004
  Transmission Date: 20130627
  Serious: Yes (Hospitalization)
  Sender: FDA-Public Use
  Company Number: CA-JNJFOC-20120209085

PATIENT
  Age: 56 Year
  Sex: Male
  Weight: 121 kg

DRUGS (8)
  1. USTEKINUMAB [Suspect]
     Indication: PSORIASIS
     Dates: start: 201002
  2. USTEKINUMAB [Suspect]
     Indication: PSORIASIS
     Dates: start: 20100811
  3. CORTICOSTEROIDS [Suspect]
     Indication: PSORIASIS
  4. HYDROCHLOROTHIAZIDE [Concomitant]
  5. LORAZEPAM [Concomitant]
  6. CYCLOBENZAPRINE [Concomitant]
  7. DIAZEPAM [Concomitant]
  8. TYLENOL 3 [Concomitant]

REACTIONS (1)
  - Cerebrovascular accident [Recovered/Resolved]
